FAERS Safety Report 6091984-7 (Version None)
Quarter: 2009Q1

REPORT INFORMATION
  Report Type: 
  Country: None (occurrence: None)
  Receive Date: 20090225
  Receipt Date: 20081120
  Transmission Date: 20090719
  Serious: Yes (Other)
  Sender: FDA-Public Use
  Company Number: A0757448A

PATIENT
  Age: 21 Year
  Sex: Female

DRUGS (2)
  1. VALTREX [Suspect]
     Dosage: 1000MG TWICE PER DAY
     Route: 048
  2. LEXAPRO [Concomitant]
     Indication: DRUG USE FOR UNKNOWN INDICATION

REACTIONS (1)
  - HALLUCINATION [None]
